FAERS Safety Report 7366583-7 (Version None)
Quarter: 2011Q1

REPORT INFORMATION
  Report Type: 
  Country: None (occurrence: None)
  Receive Date: 20110322
  Receipt Date: 20110224
  Transmission Date: 20110831
  Serious: No
  Sender: FDA-Public Use
  Company Number: US-B.I. PHARMACEUTICALS,INC./RIDGEFIELD-2011-BP-05149BP

PATIENT
  Sex: Male

DRUGS (6)
  1. VIDEX [Concomitant]
  2. VIREAD [Concomitant]
  3. BACTRIM DS [Concomitant]
  4. REYATAZ [Concomitant]
  5. NORVIR [Concomitant]
  6. SPIRIVA [Suspect]
     Indication: CHRONIC OBSTRUCTIVE PULMONARY DISEASE
     Route: 048
     Dates: start: 20110224, end: 20110224

REACTIONS (1)
  - INCORRECT ROUTE OF DRUG ADMINISTRATION [None]
